FAERS Safety Report 6800713-8 (Version None)
Quarter: 2010Q2

REPORT INFORMATION
  Report Type: 
  Country: None (occurrence: None)
  Receive Date: 20100629
  Receipt Date: 20100622
  Transmission Date: 20101027
  Serious: Yes (Death, Hospitalization)
  Sender: FDA-Public Use
  Company Number: NL-BAYER-201029891GPV

PATIENT
  Age: 73 Year
  Sex: Male

DRUGS (7)
  1. ALEMTUZUMAB [Suspect]
     Indication: T-CELL LYMPHOMA
     Dosage: A-CHOP-14, TREATMENT DAYS 1 AND 2 IN CYCLES 2 TO 6
     Route: 058
     Dates: start: 20090625, end: 20090904
  2. PREDNISONE [Suspect]
     Indication: T-CELL LYMPHOMA
     Dosage: TOTAL DAILY DOSE: 100 MG
     Route: 048
     Dates: start: 20090617, end: 20090910
  3. CYCLOPHOSPHAMIDE [Suspect]
     Indication: T-CELL LYMPHOMA
     Dosage: TOTAL DAILY DOSE: 1500 MG
     Route: 042
     Dates: start: 20090625, end: 20090903
  4. DOXORUBICIN HCL [Suspect]
     Indication: T-CELL LYMPHOMA
     Dosage: TOTAL DAILY DOSE: 100 MG
     Route: 042
     Dates: start: 20090625, end: 20090903
  5. VINCRISTINE [Suspect]
     Indication: T-CELL LYMPHOMA
     Dosage: TOTAL DAILY DOSE: 1 MG
     Route: 042
     Dates: start: 20090617, end: 20090903
  6. PEGFILGRASTIM [Suspect]
     Indication: T-CELL LYMPHOMA
     Route: 058
     Dates: start: 20090629, end: 20090906
  7. CIPROFLOXACIN [Concomitant]
     Indication: URINARY TRACT INFECTION
     Route: 042
     Dates: start: 20090828, end: 20090903

REACTIONS (9)
  - ATRIAL FIBRILLATION [None]
  - CARDIAC FAILURE [None]
  - FEBRILE NEUTROPENIA [None]
  - ILEUS PARALYTIC [None]
  - MULTI-ORGAN FAILURE [None]
  - OESOPHAGITIS [None]
  - PNEUMONIA [None]
  - RESPIRATORY FAILURE [None]
  - STENOTROPHOMONAS INFECTION [None]
